FAERS Safety Report 13761339 (Version 4)
Quarter: 2019Q2

REPORT INFORMATION
  Report Type: Spontaneous
  Country: US (occurrence: US)
  Receive Date: 20170717
  Receipt Date: 20190404
  Transmission Date: 20190711
  Serious: Yes (Other)
  Sender: FDA-Public Use
  Company Number: US-PFIZER INC-2017303773

PATIENT
  Age: 66 Year
  Sex: Female

DRUGS (2)
  1. XELJANZ XR [Suspect]
     Active Substance: TOFACITINIB CITRATE
     Dosage: 11 MG, 2X/DAY
  2. XELJANZ XR [Suspect]
     Active Substance: TOFACITINIB CITRATE
     Dosage: 11 MG, DAILY
     Route: 048
     Dates: start: 20170627

REACTIONS (7)
  - Sinus disorder [Unknown]
  - Hypoaesthesia [Unknown]
  - Ear disorder [Unknown]
  - Abdominal pain upper [Unknown]
  - Intestinal obstruction [Unknown]
  - Gastric disorder [Unknown]
  - Product use issue [Unknown]

NARRATIVE: CASE EVENT DATE: 201805
